FAERS Safety Report 4888258-6 (Version None)
Quarter: 2006Q1

REPORT INFORMATION
  Report Type: 
  Country: None (occurrence: None)
  Receive Date: 20060119
  Receipt Date: 20060110
  Transmission Date: 20060701
  Serious: Yes (Death, Hospitalization)
  Sender: FDA-Public Use
  Company Number: 200610100BWH

PATIENT
  Age: 78 Year
  Sex: Male
  Weight: 66.2252 kg

DRUGS (3)
  1. SORAFENIB [Suspect]
     Indication: METASTATIC RENAL CELL CARCINOMA
     Dosage: 400 MG, BID, ORAL
     Route: 048
     Dates: start: 20051121, end: 20051228
  2. MS CONTIN [Concomitant]
  3. VICODIN [Concomitant]

REACTIONS (15)
  - ABDOMINAL PAIN [None]
  - ATRIAL FIBRILLATION [None]
  - CONSTIPATION [None]
  - CREATINE PHOSPHOKINASE DECREASED [None]
  - DRY SKIN [None]
  - HAEMOGLOBIN DECREASED [None]
  - LUNG NEOPLASM [None]
  - MALIGNANT NEOPLASM PROGRESSION [None]
  - NAUSEA [None]
  - NECK MASS [None]
  - PRURITUS [None]
  - PULMONARY CONGESTION [None]
  - RENAL CELL CARCINOMA STAGE UNSPECIFIED [None]
  - TROPONIN INCREASED [None]
  - WEIGHT DECREASED [None]
